FAERS Safety Report 8056226-1 (Version None)
Quarter: 2012Q1

REPORT INFORMATION
  Report Type: 
  Country: None (occurrence: None)
  Receive Date: 20120119
  Receipt Date: 20120117
  Transmission Date: 20120608
  Serious: Yes (Hospitalization)
  Sender: FDA-Public Use
  Company Number: PHHO2011NL15954

PATIENT
  Sex: Female
  Weight: 59 kg

DRUGS (8)
  1. SANDIMMUNE [Suspect]
     Indication: GRAFT VERSUS HOST DISEASE
     Dosage: 1160
     Route: 048
     Dates: start: 20110625, end: 20110906
  2. VALACICLOVIR [Suspect]
     Indication: PROPHYLAXIS
     Dosage: 1000 MG, UNK
     Route: 048
     Dates: start: 20110629, end: 20110919
  3. AZITHROMYCIN [Suspect]
     Indication: PROPHYLAXIS
     Dosage: 250 MG, UNK
     Route: 048
     Dates: start: 20110629, end: 20110919
  4. CLINDAMYCIN [Suspect]
     Indication: PROPHYLAXIS
     Dosage: 600 MG, UNK
     Route: 048
     Dates: start: 20110624, end: 20110919
  5. PANTOPRAZOLE [Suspect]
     Dosage: 40 MG, UNK
     Route: 048
     Dates: start: 20110629, end: 20110919
  6. COTRIM [Suspect]
     Indication: PROPHYLAXIS
     Dosage: 450 MG, UNK
     Route: 048
     Dates: start: 20110629, end: 20110919
  7. MYCOPHENOLIC ACID [Suspect]
     Indication: GRAFT VERSUS HOST DISEASE
     Dosage: 800 MG, UNK
     Route: 048
     Dates: start: 20110628, end: 20110726
  8. PREDNISOLONE [Suspect]
     Indication: PROPHYLAXIS
     Dosage: 2.5 MG, UNK
     Route: 048
     Dates: start: 20110625, end: 20110919

REACTIONS (5)
  - CONCOMITANT DISEASE PROGRESSION [None]
  - STAPHYLOCOCCUS TEST POSITIVE [None]
  - RASH PUSTULAR [None]
  - PYREXIA [None]
  - RETINAL DETACHMENT [None]
